FAERS Safety Report 25832211 (Version 1)
Quarter: 2025Q3

REPORT INFORMATION
  Report Type: Spontaneous
  Country: US (occurrence: None)
  Receive Date: 20250919
  Receipt Date: 20250919
  Transmission Date: 20251021
  Serious: Yes (Death)
  Sender: FDA-CTU
  Company Number: None

PATIENT
  Age: 56 Year
  Sex: Female

DRUGS (1)
  1. RETACRIT [Suspect]
     Active Substance: EPOETIN ALFA-EPBX
     Indication: Product used for unknown indication
     Dosage: OTHER FREQUENCY : 3 TIMES A WEEK;?
     Route: 058
     Dates: start: 20240624

REACTIONS (1)
  - Renal failure [None]

NARRATIVE: CASE EVENT DATE: 20250910
